FAERS Safety Report 6022953-0 (Version None)
Quarter: 2008Q4

REPORT INFORMATION
  Report Type: 
  Country: None (occurrence: None)
  Receive Date: 20081230
  Receipt Date: 20060609
  Transmission Date: 20090506
  Serious: No
  Sender: FDA-Public Use
  Company Number: US-ABBOTT-08P-163-0462840-00

PATIENT

DRUGS (2)
  1. CEFDINIR [Suspect]
     Indication: OTITIS MEDIA ACUTE
  2. CEFDINIR [Suspect]
     Indication: PHARYNGITIS

REACTIONS (1)
  - PHARYNGITIS [None]
